FAERS Safety Report 17045475 (Version 1)
Quarter: 2019Q4

REPORT INFORMATION
  Report Type: Report from Study
  Country: None (occurrence: DE)
  Receive Date: 20191118
  Receipt Date: 20191118
  Transmission Date: 20200122
  Serious: No
  Sender: FDA-Public Use
  Company Number: DE-ABBVIE-19P-062-2996443-00

PATIENT
  Age: 33 Year
  Sex: Male

DRUGS (16)
  1. PANTOPRAZOL [Concomitant]
     Active Substance: PANTOPRAZOLE SODIUM
     Indication: PROPHYLAXIS
     Route: 048
     Dates: start: 20161220
  2. INFLIXIMAB [Concomitant]
     Active Substance: INFLIXIMAB
     Indication: COLITIS ULCERATIVE
     Dosage: FREQUENCY: EVERY 7 OR 8 WEEKS
     Dates: start: 20170216, end: 20170721
  3. METFORMIN [Concomitant]
     Active Substance: METFORMIN HYDROCHLORIDE
     Route: 048
     Dates: start: 20190413
  4. MAGNESIUM [Concomitant]
     Active Substance: MAGNESIUM
     Indication: MINERAL SUPPLEMENTATION
     Route: 048
     Dates: start: 20160116, end: 20190701
  5. METFORMIN [Concomitant]
     Active Substance: METFORMIN HYDROCHLORIDE
     Indication: DIABETES MELLITUS
     Route: 048
     Dates: start: 201810, end: 20190412
  6. ALLOPURINOL. [Concomitant]
     Active Substance: ALLOPURINOL
     Indication: BLOOD URIC ACID INCREASED
     Route: 048
     Dates: start: 20161220
  7. PROCORALAN [Concomitant]
     Active Substance: IVABRADINE
     Indication: HEART RATE INCREASED
     Route: 048
     Dates: start: 20161104, end: 20170515
  8. INFLIXIMAB [Concomitant]
     Active Substance: INFLIXIMAB
     Route: 042
     Dates: start: 20181119
  9. HUMIRA [Suspect]
     Active Substance: ADALIMUMAB
     Indication: COLITIS ULCERATIVE
     Route: 058
     Dates: start: 20160425, end: 201701
  10. BISOPROLOL [Concomitant]
     Active Substance: BISOPROLOL
     Indication: SINUS TACHYCARDIA
     Route: 048
     Dates: start: 20160116
  11. VIGANTOLETTEN [Concomitant]
     Active Substance: CHOLECALCIFEROL
     Indication: COLITIS ULCERATIVE
     Route: 048
     Dates: start: 20160116, end: 20190701
  12. EPLERENON BETA [Concomitant]
     Indication: CARDIAC FAILURE
     Route: 048
     Dates: start: 20161121
  13. INFLIXIMAB [Concomitant]
     Active Substance: INFLIXIMAB
     Route: 042
     Dates: start: 20170908, end: 20181001
  14. VALSARTAN. [Concomitant]
     Active Substance: VALSARTAN
     Indication: SINUS TACHYCARDIA
     Route: 048
     Dates: start: 20160116
  15. CALCIUM [Concomitant]
     Active Substance: CALCIUM
     Indication: COLITIS ULCERATIVE
     Route: 048
     Dates: start: 20160116, end: 20190701
  16. PROCORALAN [Concomitant]
     Active Substance: IVABRADINE
     Route: 048
     Dates: start: 20170516

REACTIONS (1)
  - Nonalcoholic fatty liver disease [Not Recovered/Not Resolved]

NARRATIVE: CASE EVENT DATE: 20180323
